FAERS Safety Report 23183510 (Version 1)
Quarter: 2023Q4

REPORT INFORMATION
  Report Type: Spontaneous
  Country: US (occurrence: US)
  Receive Date: 20231114
  Receipt Date: 20231114
  Transmission Date: 20240110
  Serious: No
  Sender: FDA-Public Use
  Company Number: US-JNJFOC-20231061918

PATIENT
  Sex: Female

DRUGS (2)
  1. PEPCID [Suspect]
     Active Substance: FAMOTIDINE
     Indication: Dyspepsia
     Dosage: TAKE 1 AT NIGHT
     Route: 065
  2. PEPCID [Suspect]
     Active Substance: FAMOTIDINE
     Dosage: 1 IN THE MORNING AND 1 AT NIGHT
     Route: 065

REACTIONS (1)
  - Drug ineffective [Unknown]
